FAERS Safety Report 15585988 (Version 9)
Quarter: 2019Q1

REPORT INFORMATION
  Report Type: Report from Study
  Country: AR (occurrence: AR)
  Receive Date: 20181105
  Receipt Date: 20190124
  Transmission Date: 20190417
  Serious: Yes (Life-Threatening, Hospitalization)
  Sender: FDA-Public Use
  Company Number: AR-ROCHE-2207684

PATIENT
  Age: 48 Year
  Sex: Male
  Weight: 71 kg

DRUGS (23)
  1. MYCOPHENOLATE MOFETIL. [Suspect]
     Active Substance: MYCOPHENOLATE MOFETIL
     Route: 048
     Dates: start: 20181112
  2. ENALAPRIL [Concomitant]
     Active Substance: ENALAPRIL
     Route: 048
     Dates: start: 20181112
  3. METHOTREXATE. [Concomitant]
     Active Substance: METHOTREXATE
     Indication: LUPUS NEPHRITIS
     Route: 048
     Dates: start: 201610, end: 20181028
  4. METHOTREXATE. [Concomitant]
     Active Substance: METHOTREXATE
     Route: 048
     Dates: start: 20181112
  5. PREDNISONE. [Concomitant]
     Active Substance: PREDNISONE
     Route: 048
     Dates: start: 20181030
  6. PREDNISONE. [Concomitant]
     Active Substance: PREDNISONE
     Route: 048
     Dates: start: 20181112
  7. DAPTOMYCIN. [Concomitant]
     Active Substance: DAPTOMYCIN
     Dosage: OTHER
     Route: 048
     Dates: start: 20181029
  8. FOSCARNET [Concomitant]
     Active Substance: FOSCARNET
     Dosage: OTHER
     Route: 042
     Dates: start: 20181105, end: 20181107
  9. ENALAPRIL [Concomitant]
     Active Substance: ENALAPRIL
     Route: 048
     Dates: start: 201705, end: 20181028
  10. COLECALCIFEROL [Concomitant]
     Active Substance: CHOLECALCIFEROL
     Route: 048
     Dates: start: 20181112
  11. PREDNISONE. [Concomitant]
     Active Substance: PREDNISONE
     Route: 048
     Dates: start: 20181029, end: 20181030
  12. PLACEBO [Suspect]
     Active Substance: UNSPECIFIED INGREDIENT
     Indication: LUPUS NEPHRITIS
     Dosage: ON 26/DEC/2017, AT 12:10 DOSE OF LAST BLINDED METHYLPREDNISOLONE ADMINISTERED PRIOR TO AE ONSET
     Route: 042
     Dates: start: 20170626
  13. FOSCARNET [Concomitant]
     Active Substance: FOSCARNET
     Dosage: OTHER
     Route: 042
     Dates: start: 20181103, end: 20181104
  14. ATORVASTATIN [Concomitant]
     Active Substance: ATORVASTATIN
     Indication: LUPUS NEPHRITIS
     Route: 048
     Dates: start: 20181112
  15. HYDROXYCHLOROQUINE [Concomitant]
     Active Substance: HYDROXYCHLOROQUINE
     Indication: LUPUS NEPHRITIS
     Route: 048
     Dates: start: 201610, end: 20181028
  16. HYDROXYCHLOROQUINE [Concomitant]
     Active Substance: HYDROXYCHLOROQUINE
     Route: 048
     Dates: start: 20181112
  17. PREDNISONE. [Concomitant]
     Active Substance: PREDNISONE
     Indication: LUPUS NEPHRITIS
     Route: 048
     Dates: start: 20171227, end: 20181028
  18. ACYCLOVIR. [Concomitant]
     Active Substance: ACYCLOVIR
     Dosage: OTHER
     Route: 042
     Dates: start: 20181029, end: 20181031
  19. PLACEBO [Suspect]
     Active Substance: UNSPECIFIED INGREDIENT
     Indication: LUPUS NEPHRITIS
     Dosage: ON DAYS 1, 15, 168, AND 182 (AS PER PROTOCOL).? DATE OF MOST RECENT DOSE OF BLINDED OBINUTUZUMAB PRI
     Route: 042
     Dates: start: 20170626
  20. MYCOPHENOLATE MOFETIL. [Suspect]
     Active Substance: MYCOPHENOLATE MOFETIL
     Indication: LUPUS NEPHRITIS
     Dosage: DATE OF MOST RECENT DOSE OF MYCOPHENOLATE MOFETIL/MYCOPHENOLIC ACID (2000 MG)PRIOR TO AE ONSET ON 28
     Route: 048
     Dates: start: 20160605
  21. OMEPRAZOLE. [Concomitant]
     Active Substance: OMEPRAZOLE
     Route: 048
     Dates: start: 201004
  22. CALCIUM CARBONATE. [Concomitant]
     Active Substance: CALCIUM CARBONATE
     Route: 048
     Dates: start: 201610, end: 20181028
  23. CALCIUM CARBONATE. [Concomitant]
     Active Substance: CALCIUM CARBONATE
     Route: 048
     Dates: start: 20181112

REACTIONS (2)
  - Varicella [Recovered/Resolved]
  - Nephropathy toxic [Recovered/Resolved]

NARRATIVE: CASE EVENT DATE: 20181026
